FAERS Safety Report 14310400 (Version 1)
Quarter: 2017Q4

REPORT INFORMATION
  Report Type: Spontaneous
  Country: FR (occurrence: FR)
  Receive Date: 20171220
  Receipt Date: 20171220
  Transmission Date: 20180321
  Serious: Yes (Hospitalization, Other)
  Sender: FDA-Public Use
  Company Number: FR-ELI_LILLY_AND_COMPANY-FR201712004849

PATIENT
  Age: 41 Year
  Sex: Female
  Weight: 55 kg

DRUGS (38)
  1. GEMCITABINE HYDROCHLORIDE. [Suspect]
     Active Substance: GEMCITABINE HYDROCHLORIDE
     Dosage: UNK UNK, UNKNOWN
     Route: 065
  2. OXALIPLATIN. [Suspect]
     Active Substance: OXALIPLATIN
     Indication: LYMPHOMA
     Dosage: UNK UNK, UNKNOWN
     Route: 065
  3. OXALIPLATIN. [Suspect]
     Active Substance: OXALIPLATIN
     Dosage: UNK, UNKNOWN
     Route: 065
  4. OXALIPLATIN. [Suspect]
     Active Substance: OXALIPLATIN
     Dosage: UNK UNK, UNKNOWN
     Route: 065
  5. CLOPIDOGREL [Concomitant]
     Active Substance: CLOPIDOGREL BISULFATE
     Indication: CARDIAC FAILURE
     Dosage: UNK, UNKNOWN
     Route: 065
     Dates: start: 20150811, end: 20150811
  6. RIBAVIRIN. [Suspect]
     Active Substance: RIBAVIRIN
     Indication: HEPATITIS C
     Dosage: 800 MG, DAILY
     Route: 048
     Dates: start: 20150203, end: 20150428
  7. PRAVASTATIN. [Concomitant]
     Active Substance: PRAVASTATIN
     Indication: CARDIAC FAILURE
     Dosage: UNK, UNKNOWN
     Route: 065
  8. ACETYLSALICYLIC ACID [Concomitant]
     Active Substance: ASPIRIN
     Indication: PRODUCT USED FOR UNKNOWN INDICATION
     Dosage: 100 MG, DAILY
     Route: 065
  9. NO DRUG NAME [Concomitant]
     Indication: PRODUCT USED FOR UNKNOWN INDICATION
     Dosage: UNK, UNKNOWN
     Route: 065
  10. GEMCITABINE HYDROCHLORIDE. [Suspect]
     Active Substance: GEMCITABINE HYDROCHLORIDE
     Indication: PRODUCT USED FOR UNKNOWN INDICATION
     Dosage: UNK UNK, UNKNOWN
     Route: 065
  11. GEMCITABINE HYDROCHLORIDE. [Suspect]
     Active Substance: GEMCITABINE HYDROCHLORIDE
     Dosage: UNK
     Route: 065
  12. RITUXIMAB. [Suspect]
     Active Substance: RITUXIMAB
     Indication: LYMPHOMA
     Dosage: UNK UNK, UNKNOWN
     Route: 065
  13. RITUXIMAB. [Suspect]
     Active Substance: RITUXIMAB
     Dosage: UNK UNK, UNKNOWN
     Route: 065
  14. ETOPOSIDE. [Suspect]
     Active Substance: ETOPOSIDE
     Indication: LYMPHOMA
     Dosage: 50 MG, DAILY
     Route: 048
     Dates: start: 20151019, end: 20151102
  15. IVABRADINE HYDROCHLORIDE [Concomitant]
     Active Substance: IVABRADINE HYDROCHLORIDE
     Indication: CARDIAC FAILURE
     Dosage: 5 MG, UNKNOWN
     Route: 065
  16. GEMCITABINE HYDROCHLORIDE. [Suspect]
     Active Substance: GEMCITABINE HYDROCHLORIDE
     Dosage: UNK, UNKNOWN
     Route: 065
     Dates: start: 20150908, end: 20150908
  17. GEMCITABINE HYDROCHLORIDE. [Suspect]
     Active Substance: GEMCITABINE HYDROCHLORIDE
     Dosage: UNK UNK, UNKNOWN
     Route: 065
     Dates: start: 20150825, end: 20150825
  18. GEMCITABINE HYDROCHLORIDE. [Suspect]
     Active Substance: GEMCITABINE HYDROCHLORIDE
     Dosage: UNK
     Route: 065
  19. OXALIPLATIN. [Suspect]
     Active Substance: OXALIPLATIN
     Dosage: UNK, UNKNOWN
     Route: 065
  20. SOFOSBUVIR [Suspect]
     Active Substance: SOFOSBUVIR
     Indication: HEPATITIS C
     Dosage: 400 MG, DAILY
     Route: 048
     Dates: start: 20150203, end: 20150428
  21. FUROSEMIDE. [Concomitant]
     Active Substance: FUROSEMIDE
     Indication: PRODUCT USED FOR UNKNOWN INDICATION
     Dosage: UNK, UNKNOWN
     Route: 065
  22. NO DRUG NAME [Concomitant]
     Indication: IMMUNOSUPPRESSION
     Dosage: 50 MG, DAILY
     Route: 065
     Dates: start: 1986
  23. NO DRUG NAME [Concomitant]
     Indication: PRODUCT USED FOR UNKNOWN INDICATION
     Dosage: UNK, UNKNOWN
     Route: 065
  24. RITUXIMAB. [Suspect]
     Active Substance: RITUXIMAB
     Dosage: UNK UNK, UNKNOWN
     Route: 065
  25. RITUXIMAB. [Suspect]
     Active Substance: RITUXIMAB
     Dosage: UNK UNK, UNKNOWN
     Route: 065
  26. TENOFOVIR DISOPROXIL FUMARATE. [Suspect]
     Active Substance: TENOFOVIR DISOPROXIL FUMARATE
     Indication: HEPATITIS B
     Dosage: 245 MG, DAILY
     Route: 048
     Dates: start: 20120516
  27. CYCLOPHOSPHAMIDE. [Concomitant]
     Active Substance: CYCLOPHOSPHAMIDE
     Indication: LYMPHOMA
     Dosage: 50 MG, DAILY
     Route: 065
     Dates: start: 20151126
  28. OMEPRAZOLE. [Concomitant]
     Active Substance: OMEPRAZOLE
     Indication: PRODUCT USED FOR UNKNOWN INDICATION
     Dosage: 20 MG, DAILY
     Route: 065
  29. OXALIPLATIN. [Suspect]
     Active Substance: OXALIPLATIN
     Dosage: UNK, UNKNOWN
     Route: 065
  30. OXALIPLATIN. [Suspect]
     Active Substance: OXALIPLATIN
     Dosage: UNK, UNKNOWN
     Route: 065
  31. PREDNISOLONE. [Concomitant]
     Active Substance: PREDNISOLONE
     Indication: PRODUCT USED FOR UNKNOWN INDICATION
     Dosage: 5 MG, DAILY
     Route: 065
  32. PERINDOPRIL [Concomitant]
     Active Substance: PERINDOPRIL
     Indication: HYPERTENSION
     Dosage: 2.5 MG, DAILY
     Route: 065
     Dates: end: 20151126
  33. NO DRUG NAME [Concomitant]
     Indication: PRODUCT USED FOR UNKNOWN INDICATION
     Dosage: 1000 MG, DAILY
     Route: 065
  34. NO DRUG NAME [Concomitant]
     Indication: CARDIAC FAILURE
     Dosage: UNK, UNKNOWN
     Route: 065
  35. RITUXIMAB. [Suspect]
     Active Substance: RITUXIMAB
     Dosage: UNK UNK, UNKNOWN
     Route: 065
  36. RITUXIMAB. [Suspect]
     Active Substance: RITUXIMAB
     Dosage: UNK UNK, UNKNOWN
     Route: 065
  37. DACLATASVIR DIHYDROCHLORIDE [Suspect]
     Active Substance: DACLATASVIR DIHYDROCHLORIDE
     Indication: HEPATITIS C
     Dosage: 60 MG, DAILY
     Route: 048
     Dates: start: 20150203, end: 20150428
  38. NO DRUG NAME [Concomitant]
     Indication: CARDIAC FAILURE
     Dosage: 180 MG, DAILY
     Route: 065
     Dates: start: 20150812

REACTIONS (4)
  - Anaemia [Unknown]
  - Left ventricular failure [Not Recovered/Not Resolved]
  - Diffuse large B-cell lymphoma [Not Recovered/Not Resolved]
  - Neutropenia [Recovered/Resolved]

NARRATIVE: CASE EVENT DATE: 2015
